FAERS Safety Report 21441073 (Version 1)
Quarter: 2022Q4

REPORT INFORMATION
  Report Type: Spontaneous
  Country: US (occurrence: None)
  Receive Date: 20221011
  Receipt Date: 20221011
  Transmission Date: 20230113
  Serious: Yes (Other)
  Sender: FDA-Public Use
  Company Number: 2022A339493

PATIENT
  Age: 27831 Day
  Sex: Female
  Weight: 76.7 kg

DRUGS (53)
  1. NEXIUM [Suspect]
     Active Substance: ESOMEPRAZOLE MAGNESIUM
     Indication: Gastrooesophageal reflux disease
     Route: 048
     Dates: start: 20090310, end: 20090704
  2. OMEPRAZOLE [Suspect]
     Active Substance: OMEPRAZOLE
     Indication: Gastrooesophageal reflux disease
     Route: 065
     Dates: start: 20081009, end: 20150309
  3. DEXILANT [Suspect]
     Active Substance: DEXLANSOPRAZOLE
     Indication: Gastrooesophageal reflux disease
     Route: 065
     Dates: start: 20100604, end: 20100704
  4. DEXILANT [Suspect]
     Active Substance: DEXLANSOPRAZOLE
     Indication: Gastrooesophageal reflux disease
     Route: 065
     Dates: start: 20150702
  5. AMLODIPINE [Concomitant]
     Active Substance: AMLODIPINE BESYLATE
     Indication: Blood pressure measurement
     Dates: start: 2008
  6. ELIQUIS [Concomitant]
     Active Substance: APIXABAN
     Indication: Anticoagulant therapy
     Dates: start: 2018
  7. MEMANTINE [Concomitant]
     Active Substance: MEMANTINE
     Dates: start: 2018
  8. LEVOTHYROXINE [Concomitant]
     Active Substance: LEVOTHYROXINE
     Indication: Thyroid disorder
     Dates: start: 2017
  9. CITALOPRAM [Concomitant]
     Active Substance: CITALOPRAM HYDROBROMIDE
     Indication: Depression
     Dates: start: 2015, end: 201907
  10. PROZAC [Concomitant]
     Active Substance: FLUOXETINE HYDROCHLORIDE
     Indication: Depression
     Dates: start: 201907
  11. METOPROLOL [Concomitant]
     Active Substance: METOPROLOL
     Indication: Blood pressure measurement
     Dates: start: 2007
  12. ASPIRIN [Concomitant]
     Active Substance: ASPIRIN
     Indication: Anticoagulant therapy
     Dates: start: 2008
  13. MIRALAX [Concomitant]
     Active Substance: POLYETHYLENE GLYCOL 3350
     Indication: Constipation
     Dates: start: 2010
  14. RANITIDINE [Concomitant]
     Active Substance: RANITIDINE
     Dates: start: 20150407, end: 20150605
  15. RANITIDINE [Concomitant]
     Active Substance: RANITIDINE
     Dates: start: 20180319, end: 20180419
  16. ONDANSETRON [Concomitant]
     Active Substance: ONDANSETRON
  17. ALBUTEROL [Concomitant]
     Active Substance: ALBUTEROL
  18. CHOLECALCIFEROL [Concomitant]
     Active Substance: CHOLECALCIFEROL
  19. CLOPIDOGREL [Concomitant]
     Active Substance: CLOPIDOGREL BISULFATE
  20. FLUTICASONE [Concomitant]
     Active Substance: FLUTICASONE
  21. LEVOTHYROXINE [Concomitant]
     Active Substance: LEVOTHYROXINE
  22. LISINOPRIL [Concomitant]
     Active Substance: LISINOPRIL
  23. NITROGLYCERIN [Concomitant]
     Active Substance: NITROGLYCERIN
  24. ZETIA [Concomitant]
     Active Substance: EZETIMIBE
  25. PHENAZOPYRIDINE [Concomitant]
     Active Substance: PHENAZOPYRIDINE
  26. ASCORBIC ACID [Concomitant]
     Active Substance: ASCORBIC ACID
  27. CHLORTHALIDONE [Concomitant]
     Active Substance: CHLORTHALIDONE
  28. EZETIMIBE [Concomitant]
     Active Substance: EZETIMIBE
  29. POLYETHYLENE GLYCOL [Concomitant]
     Active Substance: POLYETHYLENE GLYCOL
  30. SERTRALINE [Concomitant]
     Active Substance: SERTRALINE HYDROCHLORIDE
  31. RIVAROXABAN [Concomitant]
     Active Substance: RIVAROXABAN
  32. SODIUM CHLORIDE [Concomitant]
     Active Substance: SODIUM CHLORIDE
  33. MORPHINE [Concomitant]
     Active Substance: MORPHINE
  34. ACETAMINOPHEN [Concomitant]
     Active Substance: ACETAMINOPHEN
  35. NALOXONE [Concomitant]
     Active Substance: NALOXONE
  36. LORATADINE [Concomitant]
     Active Substance: LORATADINE
  37. PLAVIX [Concomitant]
     Active Substance: CLOPIDOGREL BISULFATE
  38. PROAIR HFA [Concomitant]
     Active Substance: ALBUTEROL SULFATE
  39. EFFEXOR [Concomitant]
     Active Substance: VENLAFAXINE HYDROCHLORIDE
  40. BENICAR HCT [Concomitant]
     Active Substance: HYDROCHLOROTHIAZIDE\OLMESARTAN MEDOXOMIL
  41. VENLAFAXINE [Concomitant]
     Active Substance: VENLAFAXINE HYDROCHLORIDE
  42. CIPROFLOXACIN [Concomitant]
     Active Substance: CIPROFLOXACIN
  43. KLOR-CON [Concomitant]
     Active Substance: POTASSIUM CHLORIDE
  44. NITROSTAT [Concomitant]
     Active Substance: NITROGLYCERIN
  45. AZITHROMYCIN [Concomitant]
     Active Substance: AZITHROMYCIN
  46. CETIRIZINE [Concomitant]
     Active Substance: CETIRIZINE HYDROCHLORIDE
  47. LIPITOR [Concomitant]
     Active Substance: ATORVASTATIN CALCIUM
  48. METHYLPREDNISOLONE [Concomitant]
     Active Substance: METHYLPREDNISOLONE
  49. NITROFURANTOIN [Concomitant]
     Active Substance: NITROFURANTOIN
  50. DULOXETINE [Concomitant]
     Active Substance: DULOXETINE
  51. DONEPEZIL [Concomitant]
     Active Substance: DONEPEZIL
  52. DOXYCYCLINE HYCLATE [Concomitant]
     Active Substance: DOXYCYCLINE HYCLATE
  53. ESCITALOPRAM [Concomitant]
     Active Substance: ESCITALOPRAM OXALATE

REACTIONS (2)
  - Chronic kidney disease [Not Recovered/Not Resolved]
  - Acute kidney injury [Unknown]

NARRATIVE: CASE EVENT DATE: 20170113
